FAERS Safety Report 13525768 (Version 1)
Quarter: 2017Q2

REPORT INFORMATION
  Report Type: Spontaneous
  Country: RU (occurrence: RU)
  Receive Date: 20170509
  Receipt Date: 20170509
  Transmission Date: 20170830
  Serious: Yes (Other)
  Sender: FDA-Public Use
  Company Number: RU-ROCHE-1931066

PATIENT
  Age: 87 Year
  Sex: Female

DRUGS (1)
  1. TRASTUZUMAB EMTANSINE [Suspect]
     Active Substance: ADO-TRASTUZUMAB EMTANSINE
     Indication: PRODUCT USED FOR UNKNOWN INDICATION
     Route: 065

REACTIONS (5)
  - Hypothermia [Unknown]
  - Palpitations [Unknown]
  - Tachypnoea [Unknown]
  - Chills [Unknown]
  - Blood pressure increased [Unknown]
